FAERS Safety Report 22969264 (Version 2)
Quarter: 2025Q2

REPORT INFORMATION
  Report Type: Spontaneous
  Country: IT (occurrence: IT)
  Receive Date: 20230922
  Receipt Date: 20250517
  Transmission Date: 20250717
  Serious: Yes (Hospitalization, Other)
  Sender: AUROBINDO
  Company Number: IT-KRKA-IT2023K12896LIT

PATIENT
  Age: 50 Year
  Sex: Male

DRUGS (8)
  1. AZITHROMYCIN [Suspect]
     Active Substance: AZITHROMYCIN
     Indication: Rhodococcus infection
     Dosage: 250 MILLIGRAM, ONCE A DAY (12 MONTHS OF TREATMENT WITH 250 MG DAILY)
     Route: 048
  2. AZITHROMYCIN [Suspect]
     Active Substance: AZITHROMYCIN
     Indication: Antibiotic therapy
  3. LEVOFLOXACIN [Suspect]
     Active Substance: LEVOFLOXACIN
     Indication: Antibiotic therapy
     Route: 065
  4. EMTRICITABINE\TENOFOVIR DISOPROXIL [Suspect]
     Active Substance: EMTRICITABINE\TENOFOVIR DISOPROXIL
     Indication: Antiretroviral therapy
     Route: 065
  5. CIPROFLOXACIN [Suspect]
     Active Substance: CIPROFLOXACIN
     Indication: Rhodococcus infection
     Route: 065
  6. SULFAMETHOXAZOLE\TRIMETHOPRIM [Suspect]
     Active Substance: SULFAMETHOXAZOLE\TRIMETHOPRIM
     Indication: Infection prophylaxis
     Dosage: 160/800MG, ONCE A DAY
     Route: 065
  7. BICTEGRAVIR [Suspect]
     Active Substance: BICTEGRAVIR
     Indication: Antiretroviral therapy
     Route: 065
  8. TENOFOVIR ALAFENAMIDE [Suspect]
     Active Substance: TENOFOVIR ALAFENAMIDE
     Indication: Antiretroviral therapy
     Dosage: 25 MILLIGRAM, ONCE A DAY
     Route: 065

REACTIONS (5)
  - Diarrhoea haemorrhagic [Unknown]
  - Anaemia [Unknown]
  - Off label use [Recovered/Resolved]
  - Rhodococcus infection [Recovered/Resolved]
  - Therapeutic response unexpected [Recovered/Resolved]
